FAERS Safety Report 16799326 (Version 9)
Quarter: 2021Q4

REPORT INFORMATION
  Report Type: Spontaneous
  Country: US (occurrence: US)
  Receive Date: 20190912
  Receipt Date: 20211231
  Transmission Date: 20220303
  Serious: Yes (Other)
  Sender: FDA-Public Use
  Company Number: US-PFIZER INC-2019393180

PATIENT
  Age: 68 Year
  Sex: Female

DRUGS (4)
  1. LYRICA [Suspect]
     Active Substance: PREGABALIN
     Indication: Pain
     Dosage: 75 MG, UNK
     Dates: start: 201708, end: 201801
  2. LYRICA [Suspect]
     Active Substance: PREGABALIN
     Indication: Neuropathy peripheral
     Dosage: 150 MG, 2X/DAY [AS DIRECTED BY PHYSICIAN, 90 DAYS]
     Route: 048
  3. LYRICA [Suspect]
     Active Substance: PREGABALIN
     Dosage: 75 MG, 2X/DAY, AS DIRECTED BY PHYSICIAN
     Route: 048
  4. LYRICA [Suspect]
     Active Substance: PREGABALIN
     Dosage: TAKES BOTH DOSES 75MG AND 150MG TO EQUAL 225MG
     Route: 048

REACTIONS (4)
  - Dependence [Unknown]
  - Therapeutic product effect incomplete [Unknown]
  - Dizziness [Unknown]
  - Balance disorder [Unknown]
